FAERS Safety Report 5342251-8 (Version None)
Quarter: 2007Q2

REPORT INFORMATION
  Report Type: 
  Country: None (occurrence: None)
  Receive Date: 20070601
  Receipt Date: 20070523
  Transmission Date: 20071010
  Serious: Yes (Other)
  Sender: FDA-Public Use
  Company Number: CA-JNJFOC-20070505955

PATIENT
  Age: 6 Decade

DRUGS (9)
  1. REMICADE [Suspect]
     Route: 042
  2. REMICADE [Suspect]
     Indication: CROHN'S DISEASE
     Dosage: 2 INFUSIONS ON UNSPECIFIED DATES.
     Route: 042
  3. PENTASA [Concomitant]
     Route: 048
  4. PREDNISONE TAB [Concomitant]
  5. ASAPHEN [Concomitant]
  6. CALCIUM CHLORIDE [Concomitant]
  7. PREMARIN [Concomitant]
     Indication: HORMONE REPLACEMENT THERAPY
  8. PREVACID [Concomitant]
     Indication: GASTROINTESTINAL DISORDER
  9. SOLU-CORTEF [Concomitant]
     Indication: PREMEDICATION

REACTIONS (3)
  - EYE INFECTION [None]
  - PRURITUS [None]
  - RASH PAPULAR [None]
